FAERS Safety Report 25764004 (Version 1)
Quarter: 2025Q3

REPORT INFORMATION
  Report Type: Spontaneous
  Country: EU (occurrence: EU)
  Receive Date: 20250905
  Receipt Date: 20250905
  Transmission Date: 20251020
  Serious: Yes (Hospitalization)
  Sender: ACCORD
  Company Number: None

PATIENT
  Sex: Female

DRUGS (3)
  1. CARBOPLATIN [Suspect]
     Active Substance: CARBOPLATIN
     Indication: Product used for unknown indication
     Dates: start: 20250519, end: 20250725
  2. NIVOLUMAB [Suspect]
     Active Substance: NIVOLUMAB
     Indication: Product used for unknown indication
     Dates: start: 20250519, end: 20250725
  3. NELVUTAMIG [Suspect]
     Active Substance: NELVUTAMIG
     Indication: Product used for unknown indication
     Dates: start: 20250519, end: 20250519

REACTIONS (1)
  - Adrenocortical insufficiency acute [Recovered/Resolved]

NARRATIVE: CASE EVENT DATE: 20250611
